FAERS Safety Report 9264255 (Version 1)
Quarter: 2013Q2

REPORT INFORMATION
  Report Type: Spontaneous
  Country: DE (occurrence: DE)
  Receive Date: 20130430
  Receipt Date: 20130430
  Transmission Date: 20140414
  Serious: Yes (Hospitalization)
  Sender: FDA-Public Use
  Company Number: GXKR2013DE001651

PATIENT
  Age: 69 Year
  Sex: Male
  Weight: 53 kg

DRUGS (6)
  1. 5-FU HEXAL [Suspect]
     Indication: GASTRIC CANCER
     Dosage: 4290 MG, UNK
     Dates: start: 20130314, end: 20130314
  2. LEUKOVORIN [Concomitant]
     Indication: GASTRIC CANCER
     Dosage: 330 MG, UNK
     Dates: start: 20130314
  3. OXALIPLATIN [Concomitant]
     Indication: GASTRIC CANCER
     Dosage: 14025 MG, UNK
     Dates: start: 20130314
  4. DOCETAXEL [Concomitant]
     Indication: GASTRIC CANCER
     Dosage: 82.5 MG, UNK
     Dates: start: 20130314
  5. CLINDAMYCIN [Concomitant]
     Indication: INTERVERTEBRAL DISCITIS
  6. CEFTRIAXON [Concomitant]
     Indication: INTERVERTEBRAL DISCITIS
     Dosage: UNK

REACTIONS (2)
  - Pyrexia [Not Recovered/Not Resolved]
  - Chills [Not Recovered/Not Resolved]
